FAERS Safety Report 5311620-4 (Version None)
Quarter: 2007Q2

REPORT INFORMATION
  Report Type: 
  Country: None (occurrence: None)
  Receive Date: 20070426
  Receipt Date: 20070426
  Transmission Date: 20071010
  Serious: Yes (Hospitalization)
  Sender: FDA-Public Use
  Company Number: None

PATIENT
  Age: 35 Year
  Sex: Female
  Weight: 62.5964 kg

DRUGS (5)
  1. FLAGYL [Suspect]
     Indication: PANCREATITIS
     Dosage: PO
     Route: 048
     Dates: start: 20061010, end: 20061020
  2. COUMADIN [Concomitant]
  3. PLAQUENIL [Concomitant]
  4. IRON [Concomitant]
  5. MULTI-VITAMIN [Concomitant]

REACTIONS (3)
  - CHROMATURIA [None]
  - PANCREATITIS [None]
  - WEIGHT DECREASED [None]
